FAERS Safety Report 20368931 (Version 1)
Quarter: 2022Q1

REPORT INFORMATION
  Report Type: Spontaneous
  Country: US (occurrence: None)
  Receive Date: 20220121
  Receipt Date: 20220121
  Transmission Date: 20220423
  Serious: Yes (Death, Hospitalization)
  Sender: FDA-Public Use
  Company Number: None

PATIENT
  Age: 83 Year
  Sex: Male
  Weight: 87.5 kg

DRUGS (19)
  1. CASIRIVIMAB\IMDEVIMAB [Suspect]
     Active Substance: CASIRIVIMAB\IMDEVIMAB
     Indication: COVID-19
     Dosage: FREQUENCY : ONCE;?
     Route: 042
     Dates: start: 20211201, end: 20211201
  2. ACETAMINOPHEN [Concomitant]
     Active Substance: ACETAMINOPHEN
     Dates: start: 20211205, end: 20211217
  3. COMBIVENT [Concomitant]
     Active Substance: ALBUTEROL SULFATE\IPRATROPIUM BROMIDE
     Dates: end: 20211217
  4. DECADRON [Concomitant]
     Active Substance: DEXAMETHASONE
     Dates: start: 20211205, end: 20211216
  5. ZITHROMAX [Concomitant]
     Active Substance: AZITHROMYCIN DIHYDRATE
     Dates: start: 20211205, end: 20211205
  6. ROCEPHIN [Concomitant]
     Active Substance: CEFTRIAXONE SODIUM
     Dates: start: 20211205, end: 20211217
  7. REMDESIVIR [Concomitant]
     Active Substance: REMDESIVIR
     Dates: start: 20211205, end: 20211214
  8. LASIX [Concomitant]
     Active Substance: FUROSEMIDE
     Dates: start: 20211205, end: 20211217
  9. Guaifenesin LA (Mucinex) [Concomitant]
     Dates: start: 20211205, end: 20211217
  10. LOVENOX [Concomitant]
     Active Substance: ENOXAPARIN SODIUM
     Dates: end: 20211217
  11. Doxycycline (Vibramycin) [Concomitant]
     Dates: end: 20211216
  12. Ascorbic Acid (Vit. C) [Concomitant]
     Dates: end: 20211217
  13. VITAMIN D3 [Concomitant]
     Active Substance: CHOLECALCIFEROL
     Dates: end: 20211217
  14. PROTONIX [Concomitant]
     Active Substance: PANTOPRAZOLE SODIUM
     Dates: end: 20211217
  15. ZINC [Concomitant]
     Active Substance: ZINC
     Dates: end: 20211217
  16. ACTEMRA [Concomitant]
     Active Substance: TOCILIZUMAB
     Dates: end: 20211207
  17. Codeine-guaifenesin (Robitussin AC) [Concomitant]
     Dates: end: 20211217
  18. MORPHINE [Concomitant]
     Active Substance: MORPHINE
     Dates: end: 20211218
  19. Benzonatate (Tessalon) [Concomitant]
     Dates: end: 20211217

REACTIONS (4)
  - Acute respiratory failure [None]
  - Pneumonia [None]
  - Diarrhoea [None]
  - Acute respiratory distress syndrome [None]

NARRATIVE: CASE EVENT DATE: 20211205
